FAERS Safety Report 25710576 (Version 1)
Quarter: 2025Q3

REPORT INFORMATION
  Report Type: Spontaneous
  Country: US (occurrence: US)
  Receive Date: 20250821
  Receipt Date: 20250821
  Transmission Date: 20251021
  Serious: Yes (Other)
  Sender: AMGEN
  Company Number: US-AMGEN-USASP2025162297

PATIENT
  Age: 39 Year
  Sex: Female

DRUGS (4)
  1. PREDNISONE [Suspect]
     Active Substance: PREDNISONE
     Indication: Immunosuppressant drug therapy
     Route: 065
  2. SPARSENTAN [Concomitant]
     Active Substance: SPARSENTAN
  3. TACROLIMUS [Concomitant]
     Active Substance: TACROLIMUS
     Indication: Immunosuppressant drug therapy
  4. MYCOPHENOLATE SODIUM [Concomitant]
     Active Substance: MYCOPHENOLATE SODIUM
     Indication: Immunosuppressant drug therapy

REACTIONS (1)
  - IgA nephropathy [Unknown]
